FAERS Safety Report 10879919 (Version 1)
Quarter: 2015Q1

REPORT INFORMATION
  Report Type: Spontaneous
  Country: US (occurrence: US)
  Receive Date: 20150302
  Receipt Date: 20150302
  Transmission Date: 20150721
  Serious: No
  Sender: FDA-Public Use
  Company Number: US-PFIZER INC-2015068156

PATIENT
  Age: 68 Year
  Sex: Male
  Weight: 75 kg

DRUGS (7)
  1. VIAGRA [Suspect]
     Active Substance: SILDENAFIL CITRATE
     Indication: ERECTILE DYSFUNCTION
     Dosage: 100 MG, 1X/WEEK OR EVERY OTHER WEEK
     Route: 048
     Dates: start: 2000
  2. BENICAR [Interacting]
     Active Substance: OLMESARTAN MEDOXOMIL
     Indication: BLOOD PRESSURE
     Dosage: 20 MG, 1X/DAY
     Route: 048
     Dates: start: 2014
  3. ANDROGEL [Concomitant]
     Active Substance: TESTOSTERONE
     Indication: ANDROGEN DEFICIENCY
     Dosage: PUT PACKET ON EACH ARM 1X/DAY
     Dates: start: 2014
  4. ATORVASTATIN CALCIUM. [Suspect]
     Active Substance: ATORVASTATIN CALCIUM
     Indication: BLOOD CHOLESTEROL
     Dosage: 10 MG, DAILY
     Route: 048
     Dates: start: 2000
  5. COUMADIN [Concomitant]
     Active Substance: WARFARIN SODIUM
     Indication: ANTICOAGULANT THERAPY
     Dosage: 4 MG, ALTERNATE DAY
     Route: 048
     Dates: start: 2013
  6. COUMADIN [Concomitant]
     Active Substance: WARFARIN SODIUM
     Dosage: 5 MG, ALTERNATE DAY
     Route: 048
     Dates: start: 2013
  7. VIAGRA [Interacting]
     Active Substance: SILDENAFIL CITRATE
     Dosage: 50 MG (CUT IN HALF OF 100S), UNK
     Route: 048

REACTIONS (4)
  - Drug interaction [Unknown]
  - Drug ineffective [Unknown]
  - Intentional product misuse [Unknown]
  - Alcohol use [Unknown]

NARRATIVE: CASE EVENT DATE: 20150214
